FAERS Safety Report 8775921 (Version 2)
Quarter: 2012Q4

REPORT INFORMATION
  Report Type: 
  Country: US (occurrence: US)
  Receive Date: 20120910
  Receipt Date: 20121009
  Transmission Date: 20130627
  Serious: Yes (Other)
  Sender: FDA-Public Use
  Company Number: US-ROCHE-1111170

PATIENT
  Sex: Male
  Weight: 74.91 kg

DRUGS (3)
  1. ZELBORAF [Suspect]
     Indication: METASTATIC MALIGNANT MELANOMA
     Route: 065
     Dates: start: 20120818, end: 20120822
  2. STEROIDS (UNK INGREDIENTS) [Concomitant]
     Indication: RASH
     Route: 048
  3. CREAM (NAME UNKNOWN) [Concomitant]
     Indication: RASH
     Route: 048

REACTIONS (11)
  - Diarrhoea [Recovering/Resolving]
  - Ageusia [Recovering/Resolving]
  - Decreased appetite [Recovering/Resolving]
  - Rash pruritic [Not Recovered/Not Resolved]
  - Asthenia [Recovering/Resolving]
  - Feeling abnormal [Unknown]
  - Skin burning sensation [Not Recovered/Not Resolved]
  - Disorientation [Recovering/Resolving]
  - Rash erythematous [Not Recovered/Not Resolved]
  - Hypogeusia [Recovering/Resolving]
  - Decreased appetite [Recovering/Resolving]
